FAERS Safety Report 9914488 (Version 1)
Quarter: 2014Q1

REPORT INFORMATION
  Report Type: Spontaneous
  Country: US (occurrence: None)
  Receive Date: 20140219
  Receipt Date: 20140219
  Transmission Date: 20141002
  Serious: Yes (Other)
  Sender: FDA-Public Use
  Company Number: None

PATIENT
  Age: 10 Year
  Sex: Male
  Weight: 30.84 kg

DRUGS (3)
  1. LEVOCETIRIZINE [Suspect]
     Indication: EYE PRURITUS
     Route: 048
     Dates: start: 20131010, end: 20131208
  2. LEVOCETIRIZINE [Suspect]
     Indication: RHINORRHOEA
     Route: 048
     Dates: start: 20131010, end: 20131208
  3. LEVOCETIRIZINE [Suspect]
     Indication: SNEEZING
     Route: 048
     Dates: start: 20131010, end: 20131208

REACTIONS (18)
  - Fatigue [None]
  - Posture abnormal [None]
  - Gait disturbance [None]
  - Abasia [None]
  - Restless legs syndrome [None]
  - Arthralgia [None]
  - Musculoskeletal pain [None]
  - Back pain [None]
  - Back pain [None]
  - Neck pain [None]
  - Chest discomfort [None]
  - Palpitations [None]
  - Epistaxis [None]
  - Joint swelling [None]
  - Joint swelling [None]
  - Urticaria [None]
  - Urticaria [None]
  - Pruritus [None]
